FAERS Safety Report 15814598 (Version 7)
Quarter: 2019Q3

REPORT INFORMATION
  Report Type: Report from Study
  Country: PL (occurrence: PL)
  Receive Date: 20190111
  Receipt Date: 20190909
  Transmission Date: 20191004
  Serious: Yes (Hospitalization)
  Sender: FDA-Public Use
  Company Number: PHHO2019PL000500

PATIENT
  Age: 67 Year
  Sex: Female
  Weight: 78 kg

DRUGS (6)
  1. AIN457 [Suspect]
     Active Substance: SECUKINUMAB
     Indication: PSORIATIC ARTHROPATHY
     Dosage: 150 MG, UNK
     Route: 058
     Dates: start: 20180416
  2. FORMETIC [Concomitant]
     Indication: DIABETES MELLITUS
     Dosage: 850 MG, QD
     Route: 065
     Dates: start: 2016
  3. TROSICAM [Concomitant]
     Active Substance: MELOXICAM
     Indication: PROSTATIC SPECIFIC ANTIGEN
     Dosage: 15 MG, QD
     Route: 065
     Dates: start: 20171005
  4. LISIHEXAL [Concomitant]
     Active Substance: LISINOPRIL
     Indication: HYPERTENSION
     Dosage: 200 MG, QD
     Route: 065
     Dates: start: 2000
  5. EUTHYROX [Concomitant]
     Active Substance: LEVOTHYROXINE SODIUM
     Indication: HYPOTHYROIDISM
     Dosage: 88 MG, QD
     Route: 065
     Dates: start: 20180124
  6. CONTROLOC [Concomitant]
     Active Substance: PANTOPRAZOLE SODIUM
     Indication: GASTRITIS PROPHYLAXIS
     Dosage: 20 MG, QD
     Route: 065
     Dates: start: 20170905

REACTIONS (1)
  - Ischaemic stroke [Recovered/Resolved]

NARRATIVE: CASE EVENT DATE: 20190102
